FAERS Safety Report 5718547-4 (Version None)
Quarter: 2008Q2

REPORT INFORMATION
  Report Type: 
  Country: None (occurrence: None)
  Receive Date: 20080425
  Receipt Date: 20080414
  Transmission Date: 20081010
  Serious: Yes (Other)
  Sender: FDA-Public Use
  Company Number: US-GENENTECH-248132

PATIENT
  Sex: Female
  Weight: 65.306 kg

DRUGS (9)
  1. BEVACIZUMAB [Suspect]
     Indication: COLORECTAL CANCER METASTATIC
     Dosage: 350 MG, Q2W
     Route: 042
     Dates: start: 20070223
  2. CETUXIMAB [Suspect]
     Indication: COLORECTAL CANCER METASTATIC
     Dosage: 470 MG, 1/WEEK
     Route: 042
     Dates: start: 20070223
  3. FLUOROURACIL [Suspect]
     Indication: COLORECTAL CANCER METASTATIC
     Dosage: 712 MG, Q2W
     Route: 040
     Dates: start: 20070223
  4. FLUOROURACIL [Suspect]
     Dosage: 4072 MG, Q2W
     Route: 042
  5. LEUCOVORIN CALCIUM [Suspect]
     Indication: COLORECTAL CANCER METASTATIC
     Dosage: 712 MG, Q2W
     Route: 042
     Dates: start: 20070223
  6. COUMADIN [Concomitant]
     Indication: DEEP VEIN THROMBOSIS
  7. BENADRYL [Concomitant]
     Indication: DRUG USE FOR UNKNOWN INDICATION
  8. TYLENOL [Concomitant]
     Indication: DRUG USE FOR UNKNOWN INDICATION
  9. DECADRON [Concomitant]
     Indication: DRUG USE FOR UNKNOWN INDICATION

REACTIONS (7)
  - BLOOD ALBUMIN DECREASED [None]
  - BLOOD POTASSIUM DECREASED [None]
  - BLOOD SODIUM DECREASED [None]
  - DEHYDRATION [None]
  - GASTRIC CANCER [None]
  - MALNUTRITION [None]
  - WHITE BLOOD CELL COUNT DECREASED [None]
